FAERS Safety Report 12539046 (Version 1)
Quarter: 2016Q3

REPORT INFORMATION
  Report Type: Spontaneous
  Country: JP (occurrence: JP)
  Receive Date: 20160708
  Receipt Date: 20160708
  Transmission Date: 20161109
  Serious: Yes (Other)
  Sender: FDA-Public Use
  Company Number: JP-009507513-1607JPN001435

PATIENT

DRUGS (3)
  1. REBETOL [Suspect]
     Active Substance: RIBAVIRIN
     Indication: HEPATITIS C
     Dosage: 400-1000 MG DAILY
     Route: 048
  2. PEGINTRON [Suspect]
     Active Substance: PEGINTERFERON ALFA-2B
     Indication: HEPATITIS C
     Dosage: 1.0-1.5 MCG/KG WEEKLY
     Route: 058
  3. TELAVIC [Suspect]
     Active Substance: TELAPREVIR
     Indication: HEPATITIS C
     Dosage: 1500MG OR 2250MG DAILY
     Route: 048

REACTIONS (9)
  - Neutropenia [Unknown]
  - Mental disorder [Unknown]
  - Acute myocardial infarction [Unknown]
  - Anaemia [Unknown]
  - Virologic failure [Unknown]
  - Thrombocytopenia [Unknown]
  - Rash [Unknown]
  - Renal impairment [Unknown]
  - Nausea [Unknown]
